APPROVED DRUG PRODUCT: CIMETIDINE HYDROCHLORIDE
Active Ingredient: CIMETIDINE HYDROCHLORIDE
Strength: EQ 300MG BASE/5ML
Dosage Form/Route: SOLUTION;ORAL
Application: A075560 | Product #001
Applicant: PHARMACEUTICAL ASSOCIATES INC
Approved: Mar 15, 2000 | RLD: No | RS: No | Type: DISCN